FAERS Safety Report 8533423-X (Version None)
Quarter: 2012Q3

REPORT INFORMATION
  Report Type: 
  Country: None (occurrence: None)
  Receive Date: 20120724
  Receipt Date: 20120719
  Transmission Date: 20120928
  Serious: Yes (Other)
  Sender: FDA-Public Use
  Company Number: PHFR2012GB004082

PATIENT
  Sex: Female

DRUGS (2)
  1. PROZAC [Interacting]
     Dates: start: 20120714
  2. CLOZARIL [Suspect]
     Indication: SCHIZOPHRENIA
     Route: 048
     Dates: start: 20090113

REACTIONS (3)
  - DRUG INTERACTION [None]
  - DYSPNOEA [None]
  - SEDATION [None]
